FAERS Safety Report 7441746-0 (Version None)
Quarter: 2011Q2

REPORT INFORMATION
  Report Type: 
  Country: None (occurrence: None)
  Receive Date: 20110425
  Receipt Date: 20110425
  Transmission Date: 20111010
  Serious: No
  Sender: FDA-Public Use
  Company Number: None

PATIENT
  Age: 65 Year
  Sex: Female
  Weight: 108.8633 kg

DRUGS (3)
  1. ACCUPUNCTURE [Concomitant]
  2. PRAVACHOL [Suspect]
     Indication: BLOOD CHOLESTEROL INCREASED
     Dosage: 1 TAB DAILY PO
     Route: 048
     Dates: start: 19920101, end: 20060101
  3. PRAVASTATIN SODIUM [Suspect]
     Indication: BLOOD CHOLESTEROL INCREASED
     Dosage: 1 TAB DAILY PO
     Route: 048
     Dates: start: 20060101, end: 20100101

REACTIONS (3)
  - PAIN IN EXTREMITY [None]
  - RENAL DISORDER [None]
  - MUSCLE TIGHTNESS [None]
